FAERS Safety Report 6337013-9 (Version None)
Quarter: 2009Q3

REPORT INFORMATION
  Report Type: 
  Country: None (occurrence: None)
  Receive Date: 20090820
  Receipt Date: 20090817
  Transmission Date: 20100115
  Serious: Yes (Other)
  Sender: FDA-Public Use
  Company Number: 2009020473

PATIENT
  Sex: Male

DRUGS (1)
  1. VIVAGLOBIN [Suspect]
     Dates: start: 20080101, end: 20081201

REACTIONS (9)
  - ABDOMINAL PAIN UPPER [None]
  - ARTHRALGIA [None]
  - DIARRHOEA [None]
  - HEADACHE [None]
  - INFLUENZA LIKE ILLNESS [None]
  - INFUSION RELATED REACTION [None]
  - INFUSION SITE INFECTION [None]
  - NAUSEA [None]
  - VOMITING [None]
